FAERS Safety Report 7327987-1 (Version None)
Quarter: 2011Q1

REPORT INFORMATION
  Report Type: 
  Country: None (occurrence: None)
  Receive Date: 20110303
  Receipt Date: 20110224
  Transmission Date: 20110831
  Serious: Yes (Other)
  Sender: FDA-Public Use
  Company Number: DE-JNJFOC-20110208368

PATIENT
  Sex: Female

DRUGS (1)
  1. BETADORM D [Suspect]
     Indication: INSOMNIA
     Route: 048

REACTIONS (1)
  - DRUG DEPENDENCE [None]
